FAERS Safety Report 16379864 (Version 2)
Quarter: 2019Q2

REPORT INFORMATION
  Report Type: Report from Study
  Country: US (occurrence: US)
  Receive Date: 20190531
  Receipt Date: 20190606
  Transmission Date: 20190711
  Serious: Yes (Hospitalization)
  Sender: FDA-Public Use
  Company Number: PHHY2019US124474

PATIENT
  Age: 47 Year

DRUGS (3)
  1. RYDAPT [Suspect]
     Active Substance: MIDOSTAURIN
     Dosage: UNK
     Route: 048
     Dates: start: 20190523
  2. RYDAPT [Suspect]
     Active Substance: MIDOSTAURIN
     Indication: CHRONIC MYELOID LEUKAEMIA
     Dosage: 50 MG, BID (30 ML, 25 MG/ML CONCENTRATION)
     Route: 065
  3. RYDAPT [Suspect]
     Active Substance: MIDOSTAURIN
     Dosage: UNK
     Route: 065
     Dates: start: 20190423

REACTIONS (1)
  - Mental status changes [Unknown]
